FAERS Safety Report 9061782 (Version 1)
Quarter: 2013Q1

REPORT INFORMATION
  Report Type: Spontaneous
  Country: US (occurrence: None)
  Receive Date: 20130122
  Receipt Date: 20130122
  Transmission Date: 20140127
  Serious: Yes (Hospitalization, Other)
  Sender: FDA-Public Use
  Company Number: 2013STPI000007

PATIENT
  Age: 25 Year
  Sex: Male
  Weight: 122.5 kg

DRUGS (16)
  1. ONCASPAR [Suspect]
     Indication: PRECURSOR T-LYMPHOBLASTIC LYMPHOMA/LEUKAEMIA
     Route: 030
     Dates: start: 20121126, end: 20121217
  2. VELCADE (BORTEZOMIB) [Suspect]
     Indication: PRECURSOR T-LYMPHOBLASTIC LYMPHOMA/LEUKAEMIA
     Route: 042
     Dates: start: 20121126, end: 20121207
  3. CYTARABINE (CYTARABINE) [Suspect]
     Indication: PRECURSOR T-LYMPHOBLASTIC LYMPHOMA/LEUKAEMIA
     Route: 037
     Dates: start: 20121126, end: 20121126
  4. DOXORUBICIN HYDROCHLORIDE [Suspect]
     Indication: PRECURSOR T-LYMPHOBLASTIC LYMPHOMA/LEUKAEMIA
     Route: 042
     Dates: start: 20121126, end: 20121126
  5. METHOTREXATE [Suspect]
     Indication: PRECURSOR T-LYMPHOBLASTIC LYMPHOMA/LEUKAEMIA
     Route: 037
     Dates: start: 20121126, end: 20121210
  6. PREDNISONE [Suspect]
     Indication: PRECURSOR T-LYMPHOBLASTIC LYMPHOMA/LEUKAEMIA
     Route: 048
     Dates: start: 20121126, end: 20121223
  7. VINCRISTINE SULFATE (VINCRISTINE SULFATE) [Suspect]
     Indication: PRECURSOR T-LYMPHOBLASTIC LYMPHOMA/LEUKAEMIA
     Route: 042
     Dates: start: 20121126, end: 20121217
  8. SENNA [Suspect]
  9. SEPTRA (SULFAMETHOXAZOLE, TRIMETHOPRIM) [Concomitant]
  10. ZANTAC (RANITIDINE HYDROCHLORIDE) [Concomitant]
  11. ATIVAN (LORAZEPAM) [Concomitant]
  12. BACLOFEN (BACLOFEN) (BACLOFEN) [Concomitant]
  13. BENADRYL [Concomitant]
  14. DOCUSATE [Concomitant]
  15. MIRALAX [Concomitant]
  16. ZOFRAN [Concomitant]

REACTIONS (12)
  - Hypertriglyceridaemia [None]
  - Pancreatitis necrotising [None]
  - Herpes zoster [None]
  - Hypophosphataemia [None]
  - Hypotension [None]
  - Hyponatraemia [None]
  - Blood lactic acid increased [None]
  - Platelet count decreased [None]
  - Blood bilirubin increased [None]
  - Pyrexia [None]
  - Hypovolaemia [None]
  - Ileus [None]
